FAERS Safety Report 25509075 (Version 1)
Quarter: 2025Q3

REPORT INFORMATION
  Report Type: Spontaneous
  Country: EU (occurrence: EU)
  Receive Date: 20250703
  Receipt Date: 20250703
  Transmission Date: 20251020
  Serious: Yes (Other)
  Sender: DR REDDYS
  Company Number: None

PATIENT
  Age: 80 Year
  Sex: Male

DRUGS (6)
  1. AZACITIDINE [Suspect]
     Active Substance: AZACITIDINE
     Indication: Blastic plasmacytoid dendritic cell neoplasia
     Dosage: 75 MG/M2/DAY/7D/CYCLE
  2. AZACITIDINE [Suspect]
     Active Substance: AZACITIDINE
     Dosage: FROM C7, AZACITIDINE WAS REDUCED TO 5D
  3. VENETOCLAX [Suspect]
     Active Substance: VENETOCLAX
     Indication: Blastic plasmacytoid dendritic cell neoplasia
  4. VENETOCLAX [Suspect]
     Active Substance: VENETOCLAX
     Dosage: 200MG/DAY FROM C2
  5. VENETOCLAX [Suspect]
     Active Substance: VENETOCLAX
     Dosage: AFTER C4 REDUCED TO 21
  6. GRANULOCYTE COLONY STIMULATING FACT [Concomitant]
     Indication: Product used for unknown indication

REACTIONS (5)
  - Haematotoxicity [Unknown]
  - Cytopenia [Unknown]
  - Product use in unapproved indication [Unknown]
  - Pancytopenia [Not Recovered/Not Resolved]
  - Off label use [Unknown]
